FAERS Safety Report 8452467-X (Version None)
Quarter: 2012Q2

REPORT INFORMATION
  Report Type: 
  Country: None (occurrence: None)
  Receive Date: 20120620
  Receipt Date: 20120502
  Transmission Date: 20120825
  Serious: No
  Sender: FDA-Public Use
  Company Number: US-VERTEX PHARMACEUTICALS INC.-AE-2012-005250

PATIENT
  Sex: Female
  Weight: 77.18 kg

DRUGS (4)
  1. RIBASPHERE [Concomitant]
     Indication: HEPATITIS C
     Route: 048
     Dates: start: 20120313
  2. INCIVEK [Suspect]
     Indication: HEPATITIS C
     Route: 048
     Dates: start: 20120313
  3. RIBASPHERE [Concomitant]
     Route: 048
     Dates: start: 20120330
  4. PEGASYS [Concomitant]
     Indication: HEPATITIS C
     Route: 058
     Dates: start: 20120313

REACTIONS (6)
  - DYSPNOEA [None]
  - LISTLESS [None]
  - FATIGUE [None]
  - RASH PRURITIC [None]
  - INFLUENZA LIKE ILLNESS [None]
  - WHITE BLOOD CELL COUNT DECREASED [None]
